FAERS Safety Report 5626218-8 (Version None)
Quarter: 2008Q1

REPORT INFORMATION
  Report Type: 
  Country: None (occurrence: None)
  Receive Date: 20080214
  Receipt Date: 20080208
  Transmission Date: 20080703
  Serious: Yes (Other)
  Sender: FDA-Public Use
  Company Number: B0503312A

PATIENT
  Age: 39 Year
  Sex: Female
  Weight: 45 kg

DRUGS (5)
  1. PAXIL [Suspect]
     Indication: ANXIETY DISORDER
     Dosage: 10MG PER DAY
     Route: 048
     Dates: start: 20071228
  2. MYSLEE [Concomitant]
     Indication: INSOMNIA
     Dosage: 10MG PER DAY
     Route: 048
     Dates: start: 20071228
  3. DOGMATYL [Concomitant]
     Dosage: 100MG PER DAY
     Route: 048
  4. SOLANAX [Concomitant]
     Indication: ANXIETY DISORDER
     Dosage: .8MG PER DAY
     Route: 048
     Dates: start: 20071228
  5. GASMOTIN [Concomitant]
     Indication: NAUSEA
     Dosage: 5MG PER DAY
     Route: 048
     Dates: start: 20071228

REACTIONS (3)
  - ABDOMINAL PAIN [None]
  - METRORRHAGIA [None]
  - UTERINE LEIOMYOMA [None]
